FAERS Safety Report 8113004-2 (Version None)
Quarter: 2012Q1

REPORT INFORMATION
  Report Type: 
  Country: None (occurrence: None)
  Receive Date: 20120203
  Receipt Date: 20120123
  Transmission Date: 20120608
  Serious: Yes (Other)
  Sender: FDA-Public Use
  Company Number: US-ELI_LILLY_AND_COMPANY-US201007001298

PATIENT
  Sex: Female

DRUGS (11)
  1. CALTRATE [Concomitant]
  2. MULTI-VITAMINS [Concomitant]
  3. COUMADIN [Concomitant]
  4. FORTEO [Suspect]
     Dosage: 20 UG, DAILY (1/D)
  5. FORTEO [Suspect]
     Dosage: 20 UG, QD
  6. ARTHROTEC [Concomitant]
  7. SOTALOL HCL [Concomitant]
  8. VYTORIN [Concomitant]
  9. FORTEO [Suspect]
     Indication: OSTEOPOROSIS
     Dosage: 20 UG, DAILY (1/D)
     Dates: start: 20100602
  10. FORTEO [Suspect]
     Dosage: 20 UG, QD
  11. VITAMIN D [Concomitant]

REACTIONS (10)
  - ARTHROPATHY [None]
  - SKIN INJURY [None]
  - HIP FRACTURE [None]
  - GASTROENTERITIS VIRAL [None]
  - INFECTION [None]
  - PHOTOSENSITIVITY REACTION [None]
  - CONTUSION [None]
  - MYALGIA [None]
  - OEDEMA PERIPHERAL [None]
  - HEADACHE [None]
